FAERS Safety Report 16991195 (Version 2)
Quarter: 2019Q4

REPORT INFORMATION
  Report Type: Report from Study
  Country: US (occurrence: US)
  Receive Date: 20191104
  Receipt Date: 20191113
  Transmission Date: 20200122
  Serious: No
  Sender: FDA-Public Use
  Company Number: US-BEH-2019108797

PATIENT
  Sex: Female
  Weight: 56.69 kg

DRUGS (1)
  1. HIZENTRA [Suspect]
     Active Substance: HUMAN IMMUNOGLOBULIN G
     Indication: PRODUCT USED FOR UNKNOWN INDICATION
     Dosage: UNK
     Route: 058
     Dates: start: 20191013

REACTIONS (8)
  - Muscle discomfort [Unknown]
  - Impaired healing [Unknown]
  - Injection site nodule [Unknown]
  - Injection site bruising [Unknown]
  - Incorrect product administration duration [Unknown]
  - No adverse event [Unknown]
  - Weight increased [Unknown]
  - Injection site urticaria [Unknown]
